FAERS Safety Report 8309753-3 (Version None)
Quarter: 2012Q2

REPORT INFORMATION
  Report Type: 
  Country: None (occurrence: None)
  Receive Date: 20120425
  Receipt Date: 20120411
  Transmission Date: 20120825
  Serious: Yes (Other)
  Sender: FDA-Public Use
  Company Number: PHHY2012BR030923

PATIENT
  Age: 63 Year
  Sex: Female

DRUGS (1)
  1. TRILEPTAL [Suspect]
     Indication: ABNORMAL BEHAVIOUR
     Dosage: 1 DF DAILY

REACTIONS (13)
  - CYST [None]
  - PREMENSTRUAL SYNDROME [None]
  - ABNORMAL BEHAVIOUR [None]
  - TENDONITIS [None]
  - ARTHROPATHY [None]
  - BURSITIS [None]
  - PAIN IN EXTREMITY [None]
  - FEELING ABNORMAL [None]
  - ARTHRALGIA [None]
  - IRRITABILITY [None]
  - TENDON RUPTURE [None]
  - MENISCUS LESION [None]
  - CHONDROPATHY [None]
